FAERS Safety Report 7808395 (Version 2)
Quarter: 2013Q4

REPORT INFORMATION
  Report Type: Spontaneous
  Country: US (occurrence: US)
  Receive Date: 20110211
  Receipt Date: 20131231
  Transmission Date: 20140711
  Serious: Yes (Other)
  Sender: FDA-Public Use
  Company Number: US-BAYER-2011-013056

PATIENT
  Age: 47 Year
  Sex: Female

DRUGS (4)
  1. YAZ [Suspect]
     Indication: PRODUCT USED FOR UNKNOWN INDICATION
     Dosage: UNK
     Dates: start: 200807, end: 200811
  2. YAZ [Suspect]
     Indication: CONTRACEPTION
  3. YASMIN [Suspect]
     Indication: PRODUCT USED FOR UNKNOWN INDICATION
     Dosage: UNK
     Dates: start: 200807, end: 200811
  4. OCELLA [Suspect]
     Indication: PRODUCT USED FOR UNKNOWN INDICATION
     Dosage: UNK
     Dates: start: 200807, end: 200811

REACTIONS (5)
  - Gallbladder disorder [None]
  - Cholecystitis chronic [None]
  - Pain [None]
  - Emotional distress [None]
  - Anxiety [None]
